FAERS Safety Report 6410394-3 (Version None)
Quarter: 2009Q4

REPORT INFORMATION
  Report Type: 
  Country: None (occurrence: None)
  Receive Date: 20091022
  Receipt Date: 20091019
  Transmission Date: 20100525
  Serious: Yes (Death, Hospitalization)
  Sender: FDA-Public Use
  Company Number: PHHY2009BR37417

PATIENT
  Sex: Male

DRUGS (5)
  1. EXELON [Suspect]
     Indication: DEMENTIA ALZHEIMER'S TYPE
     Dosage: 1 PATCH (18 MG) DAILY
     Route: 062
  2. CLOPIDOGREL [Concomitant]
  3. SEROQUEL [Concomitant]
     Dosage: 25 MG, UNK
  4. INDAPEN [Concomitant]
  5. AAS [Concomitant]

REACTIONS (6)
  - COUGH [None]
  - DEMENTIA ALZHEIMER'S TYPE [None]
  - HAEMOPTYSIS [None]
  - LUNG INFECTION [None]
  - PULMONARY ALVEOLAR HAEMORRHAGE [None]
  - SHOCK [None]
